FAERS Safety Report 9914152 (Version 1)
Quarter: 2014Q1

REPORT INFORMATION
  Report Type: Spontaneous
  Country: FR (occurrence: FR)
  Receive Date: 20140220
  Receipt Date: 20140220
  Transmission Date: 20141002
  Serious: Yes (Hospitalization)
  Sender: FDA-Public Use
  Company Number: FR-PFIZER INC-2014045591

PATIENT
  Age: 66 Year
  Sex: Female

DRUGS (14)
  1. NEURONTIN [Suspect]
     Indication: SCIATICA
     Dosage: 100 MG, 1X/DAY
     Dates: start: 20131230
  2. NEURONTIN [Suspect]
     Dosage: 400 MG, 1X/DAY (300MG IN THE MORNUING AND 100MG IN THE EVENING)
     Dates: end: 20140110
  3. DOLIPRANE [Concomitant]
  4. MOSCONTIN [Concomitant]
  5. SEVREDOL [Concomitant]
  6. ASPIRINE [Concomitant]
     Dosage: UNK
  7. CETIRIZINE [Concomitant]
     Dosage: UNK
  8. ATARAX [Concomitant]
     Dosage: UNK
  9. ZOLPIDEM [Concomitant]
  10. AMLOR [Concomitant]
  11. ALLOPURINOL [Concomitant]
  12. LASILIX [Concomitant]
  13. CORTANCYL [Concomitant]
     Dosage: UNK
     Dates: start: 20131226
  14. MIANSERIN [Concomitant]
     Dosage: UNK
     Dates: start: 20131231

REACTIONS (1)
  - Dyskinesia [Recovered/Resolved]
